FAERS Safety Report 14314055 (Version 7)
Quarter: 2021Q2

REPORT INFORMATION
  Report Type: Spontaneous
  Country: US (occurrence: US)
  Receive Date: 20171221
  Receipt Date: 20210518
  Transmission Date: 20210716
  Serious: Yes (Hospitalization, Other)
  Sender: FDA-Public Use
  Company Number: US-PFIZER INC-2017539316

PATIENT
  Age: 45 Year
  Sex: Female

DRUGS (8)
  1. VISTARIL [Suspect]
     Active Substance: HYDROXYZINE PAMOATE
     Indication: VERTIGO
     Dosage: 25 MG, 1X/DAY (Q?AM PRO?ACTIVE)
     Dates: start: 2002
  2. VISTARIL [Suspect]
     Active Substance: HYDROXYZINE PAMOATE
     Dosage: 25 MG, UNK
  3. FENOFIBRATE. [Concomitant]
     Active Substance: FENOFIBRATE
     Dosage: 160 MG, 1X/DAY
     Dates: start: 2006
  4. VISTARIL [Suspect]
     Active Substance: HYDROXYZINE PAMOATE
     Indication: NAUSEA
     Dosage: 50 MG, 4X/DAY (QID)
     Dates: start: 2002
  5. VISTARIL [Suspect]
     Active Substance: HYDROXYZINE PAMOATE
     Dosage: 25 MG, 3X/DAY AS NEEDED
     Route: 048
     Dates: start: 2012
  6. VISTARIL [Suspect]
     Active Substance: HYDROXYZINE PAMOATE
     Dosage: 50 MG, EVERY 4 HRS
  7. VALSARTAN. [Concomitant]
     Active Substance: VALSARTAN
     Dosage: 80 MG, 1X/DAY
     Dates: start: 2006
  8. VISTARIL [Suspect]
     Active Substance: HYDROXYZINE PAMOATE
     Dosage: 25 MG, AS NEEDED (MAXIMUM 2 CAPSULES, 4X^S/DAY); (TAKE MAXIMUM: 2 TABLETS, MEDICINE 25 MG 3X^S/DAY)

REACTIONS (4)
  - Sluggishness [Recovered/Resolved]
  - Sinus congestion [Unknown]
  - Somnolence [Unknown]
  - Drug ineffective for unapproved indication [Unknown]

NARRATIVE: CASE EVENT DATE: 2002
